FAERS Safety Report 5193032-X (Version None)
Quarter: 2006Q4

REPORT INFORMATION
  Report Type: 
  Country: None (occurrence: None)
  Receive Date: 20061228
  Receipt Date: 20060306
  Transmission Date: 20070319
  Serious: No
  Sender: FDA-Public Use
  Company Number: US-GLAXOSMITHKLINE-A0596291A

PATIENT
  Sex: Male

DRUGS (2)
  1. AVODART [Suspect]
     Dosage: .5MG PER DAY
     Route: 048
     Dates: start: 20030801
  2. HAIR RESTORER [Concomitant]

REACTIONS (6)
  - ANHIDROSIS [None]
  - DERMATITIS [None]
  - ILL-DEFINED DISORDER [None]
  - IMPAIRED HEALING [None]
  - SCAR [None]
  - SKIN WRINKLING [None]
